FAERS Safety Report 12195560 (Version 1)
Quarter: 2016Q1

REPORT INFORMATION
  Report Type: Spontaneous
  Country: CN (occurrence: CN)
  Receive Date: 20160321
  Receipt Date: 20160321
  Transmission Date: 20160526
  Serious: Yes (Other)
  Sender: FDA-Public Use
  Company Number: CN-CIPLA LTD.-2016CN02596

PATIENT

DRUGS (5)
  1. TRASTUZUMAB [Suspect]
     Active Substance: TRASTUZUMAB
     Dosage: 6 MG/KG, SUBSEQUENT DOSE
     Route: 065
  2. PACLITAXEL. [Suspect]
     Active Substance: PACLITAXEL
     Indication: INVASIVE BREAST CARCINOMA
     Dosage: 175 MG/M2, INFUSED OVER 3 H, BIWEEKLY, ON DAY 1 FOR 4 CYCLES
     Route: 041
  3. GRANULOCYTE-COLONY STIMULATING FACTORS (G-CSF) [Concomitant]
     Indication: PROPHYLAXIS
     Dosage: 300 ?G PER DAY, ON DAY 2 AND 3
     Route: 065
  4. TRASTUZUMAB [Suspect]
     Active Substance: TRASTUZUMAB
     Indication: INVASIVE BREAST CARCINOMA
     Dosage: 4 MG/KG, INITIAL DOSE
     Route: 065
  5. CARBOPLATIN. [Suspect]
     Active Substance: CARBOPLATIN
     Indication: INVASIVE BREAST CARCINOMA
     Dosage: AUC 5, ON DAY 1, BIWEEKLY FOR 4 CYCLES
     Route: 065

REACTIONS (1)
  - Bone pain [Unknown]
